FAERS Safety Report 12647312 (Version 1)
Quarter: 2016Q3

REPORT INFORMATION
  Report Type: Report from Study
  Country: CA (occurrence: CA)
  Receive Date: 20160812
  Receipt Date: 20160812
  Transmission Date: 20161109
  Serious: Yes (Other)
  Sender: FDA-Public Use
  Company Number: PHHY2015CA047853

PATIENT
  Age: 64 Year
  Sex: Female

DRUGS (2)
  1. SEEBRI BREEZHALER [Suspect]
     Active Substance: GLYCOPYRROLATE
     Indication: PRODUCT USED FOR UNKNOWN INDICATION
     Route: 065
  2. XOLAIR [Suspect]
     Active Substance: OMALIZUMAB
     Indication: ASTHMA
     Dosage: 225 MG, BIW
     Route: 058
     Dates: start: 20100521, end: 20151202

REACTIONS (8)
  - Pulmonary pain [Recovering/Resolving]
  - Sputum discoloured [Unknown]
  - Lung infection [Unknown]
  - Saliva discolouration [Unknown]
  - Breath odour [Unknown]
  - Hypersensitivity [Unknown]
  - Dyspnoea [Unknown]
  - Pulmonary function test abnormal [Recovering/Resolving]

NARRATIVE: CASE EVENT DATE: 2015
